FAERS Safety Report 9330839 (Version 1)
Quarter: 2013Q2

REPORT INFORMATION
  Report Type: Spontaneous
  Country: US (occurrence: None)
  Receive Date: 20130604
  Receipt Date: 20130604
  Transmission Date: 20140414
  Serious: No
  Sender: FDA-Public Use
  Company Number: None

PATIENT
  Age: 70 Year
  Sex: Female
  Weight: 76.2 kg

DRUGS (2)
  1. TYLENOL #3 [Suspect]
     Indication: RHEUMATOID ARTHRITIS
     Dates: start: 20130521
  2. TYLENOL #3 [Suspect]
     Indication: PAIN
     Dates: start: 20130521

REACTIONS (1)
  - Lip swelling [None]
